FAERS Safety Report 6567978-1 (Version None)
Quarter: 2010Q1

REPORT INFORMATION
  Report Type: 
  Country: None (occurrence: None)
  Receive Date: 20100203
  Receipt Date: 20100104
  Transmission Date: 20100710
  Serious: Yes (Hospitalization)
  Sender: FDA-Public Use
  Company Number: US-SANOFI-AVENTIS-F03200900026

PATIENT
  Age: 52 Year
  Sex: Male
  Weight: 87 kg

DRUGS (9)
  1. PLAVIX [Suspect]
     Indication: PERCUTANEOUS CORONARY INTERVENTION
     Dosage: DOSE TEXT: 4  CAPSULES PRE-PROCEDURE AND 4 CAPSULES POST-PROCEDUREUNIT DOSE: 4 DF
     Route: 048
     Dates: start: 20080611, end: 20080611
  2. PLACEBO [Suspect]
     Indication: PERCUTANEOUS CORONARY INTERVENTION
     Route: 065
     Dates: start: 20080111, end: 20080611
  3. PLACEBO [Suspect]
     Route: 065
     Dates: start: 20080611, end: 20080611
  4. ANGIOMAX [Concomitant]
     Route: 065
     Dates: start: 20080611, end: 20080611
  5. ASPIRIN [Concomitant]
     Route: 065
  6. HEPARIN-FRACTION [Concomitant]
     Route: 065
  7. VERSED [Concomitant]
     Route: 065
     Dates: start: 20080611, end: 20080611
  8. LIPITOR [Concomitant]
     Route: 065
     Dates: start: 20080611, end: 20080612
  9. DOCUSATE SODIUM [Concomitant]
     Route: 065
     Dates: start: 20080611, end: 20080611

REACTIONS (1)
  - HYPERTENSIVE EMERGENCY [None]
